FAERS Safety Report 16872253 (Version 1)
Quarter: 2019Q4

REPORT INFORMATION
  Report Type: Spontaneous
  Country: US (occurrence: US)
  Receive Date: 20191001
  Receipt Date: 20191001
  Transmission Date: 20200122
  Serious: Yes (Hospitalization)
  Sender: FDA-Public Use
  Company Number: PHEH2019US040012

PATIENT

DRUGS (4)
  1. LETROZOLE. [Suspect]
     Active Substance: LETROZOLE
     Indication: BREAST CANCER
  2. IBRANCE [Suspect]
     Active Substance: PALBOCICLIB
     Indication: BREAST CANCER METASTATIC
     Dosage: 125 MG, QD
     Route: 065
     Dates: start: 201609
  3. LETROZOLE. [Suspect]
     Active Substance: LETROZOLE
     Indication: PROGESTERONE RECEPTOR ASSAY POSITIVE
  4. LETROZOLE. [Suspect]
     Active Substance: LETROZOLE
     Indication: OESTROGEN RECEPTOR ASSAY POSITIVE
     Dosage: UNK
     Route: 065
     Dates: start: 201607

REACTIONS (6)
  - Ear congestion [Recovered/Resolved]
  - Libido disorder [Not Recovered/Not Resolved]
  - White blood cell count decreased [Recovered/Resolved]
  - Female sex hormone level abnormal [Not Recovered/Not Resolved]
  - Arthralgia [Unknown]
  - Stomatitis [Unknown]

NARRATIVE: CASE EVENT DATE: 201709
